FAERS Safety Report 7018278-7 (Version None)
Quarter: 2010Q3

REPORT INFORMATION
  Report Type: 
  Country: None (occurrence: None)
  Receive Date: 20100922
  Receipt Date: 20100915
  Transmission Date: 20110219
  Serious: Yes (Other)
  Sender: FDA-Public Use
  Company Number: 009730

PATIENT
  Sex: Female
  Weight: 55 kg

DRUGS (6)
  1. KEPPRA [Suspect]
     Dosage: (1 G ORAL) ; (1000 MG ORAL) ; (2.5 G ORAL)
     Route: 048
     Dates: start: 20090501, end: 20091231
  2. KEPPRA [Suspect]
     Dosage: (1 G ORAL) ; (1000 MG ORAL) ; (2.5 G ORAL)
     Route: 048
     Dates: start: 20090101
  3. KEPPRA [Suspect]
     Dosage: (1 G ORAL) ; (1000 MG ORAL) ; (2.5 G ORAL)
     Route: 048
     Dates: start: 20100325
  4. LAMICTAL [Suspect]
     Dosage: (100 MG ORAL) ; (175 MG ORAL) ; (300 MG ORAL)
     Route: 048
     Dates: start: 20091231
  5. LAMICTAL [Suspect]
     Dosage: (100 MG ORAL) ; (175 MG ORAL) ; (300 MG ORAL)
     Route: 048
     Dates: start: 20100101
  6. URBANYL (URBANYL) (NOT SPECIFIED) [Suspect]
     Dosage: (5 MG ORAL)
     Route: 048
     Dates: start: 20100101

REACTIONS (5)
  - CAESAREAN SECTION [None]
  - DRUG EXPOSURE DURING PREGNANCY [None]
  - PARTIAL SEIZURES WITH SECONDARY GENERALISATION [None]
  - PREGNANCY [None]
  - SIMPLE PARTIAL SEIZURES [None]
